FAERS Safety Report 19108387 (Version 1)
Quarter: 2021Q2

REPORT INFORMATION
  Report Type: Spontaneous
  Country: US (occurrence: US)
  Receive Date: 20210408
  Receipt Date: 20210408
  Transmission Date: 20210717
  Serious: Yes (Hospitalization)
  Sender: FDA-Public Use
  Company Number: None

PATIENT
  Age: 26 Year
  Sex: Male

DRUGS (8)
  1. DIASTAT [Concomitant]
     Active Substance: DIAZEPAM
  2. LORAZEPAM. [Concomitant]
     Active Substance: LORAZEPAM
  3. RISPERDAL [Concomitant]
     Active Substance: RISPERIDONE
  4. VIMPAT [Concomitant]
     Active Substance: LACOSAMIDE
  5. VITAMIN D3 [Concomitant]
     Active Substance: CHOLECALCIFEROL
  6. FYCOMPA [Concomitant]
     Active Substance: PERAMPANEL
  7. EPIDIOLEX [Suspect]
     Active Substance: CANNABIDIOL
     Indication: LENNOX-GASTAUT SYNDROME
     Route: 048
     Dates: start: 20191108
  8. FELBAMATE. [Concomitant]
     Active Substance: FELBAMATE

REACTIONS (1)
  - Pneumonia aspiration [None]

NARRATIVE: CASE EVENT DATE: 20210323
